FAERS Safety Report 8089108-X (Version None)
Quarter: 2012Q1

REPORT INFORMATION
  Report Type: 
  Country: None (occurrence: None)
  Receive Date: 20120128
  Receipt Date: 20110627
  Transmission Date: 20120608
  Serious: No
  Sender: FDA-Public Use
  Company Number: US-ABBOTT-11P-163-0834624-00

PATIENT
  Age: 74 Year
  Sex: Female

DRUGS (8)
  1. ALEVE OTC [Concomitant]
     Indication: ARTHRALGIA
  2. HUMIRA [Suspect]
     Indication: RHEUMATOID ARTHRITIS
     Dates: start: 20050601
  3. TYLENOL-500 [Concomitant]
     Indication: PAIN
  4. VITAMIN D [Concomitant]
     Indication: SUPPLEMENTATION THERAPY
  5. MULTI-VITAMIN [Concomitant]
     Indication: SUPPLEMENTATION THERAPY
  6. VICODIN [Concomitant]
     Indication: PAIN
  7. FOSAMAX [Concomitant]
     Indication: OSTEOPOROSIS PROPHYLAXIS
  8. ATENOLOL [Concomitant]
     Indication: HYPERTENSION

REACTIONS (1)
  - RASH [None]
